FAERS Safety Report 11675887 (Version 1)
Quarter: 2015Q4

REPORT INFORMATION
  Report Type: Report from Study
  Country: AU (occurrence: AU)
  Receive Date: 20151028
  Receipt Date: 20151028
  Transmission Date: 20160304
  Serious: Yes (Hospitalization, Other)
  Sender: FDA-Public Use
  Company Number: AU-KADMON PHARMACEUTICALS, LLC-KAD201507-002144

PATIENT
  Sex: Female

DRUGS (6)
  1. ABT-450/RITONAVIR/ABT-267 [Suspect]
     Active Substance: OMBITASVIR\PARITAPREVIR\RITONAVIR
     Indication: HEPATITIS C
     Dosage: TABLET
     Route: 048
     Dates: start: 20150605, end: 20150630
  2. LIPOX (SIMVASTATIN) [Concomitant]
     Indication: PROPHYLAXIS
     Route: 048
  3. ABT-333 [Suspect]
     Active Substance: DASABUVIR
     Indication: HEPATITIS C
     Dosage: TABLET
     Route: 048
     Dates: start: 20150605, end: 20150630
  4. LIPOX (SIMVASTATIN) [Concomitant]
     Indication: HYPERTENSIVE HEART DISEASE
  5. LIPOX (SIMVASTATIN) [Concomitant]
     Indication: CEREBROVASCULAR ACCIDENT
  6. RIBAVIRIN. [Suspect]
     Active Substance: RIBAVIRIN
     Indication: HEPATITIS C
     Dosage: TABLET
     Route: 048
     Dates: start: 20150605, end: 20150630

REACTIONS (2)
  - Cerebrovascular accident [Unknown]
  - Rhabdomyolysis [Unknown]
